FAERS Safety Report 19360955 (Version 1)
Quarter: 2021Q2

REPORT INFORMATION
  Report Type: Spontaneous
  Country: DE (occurrence: DE)
  Receive Date: 20210601
  Receipt Date: 20210601
  Transmission Date: 20210717
  Serious: Yes (Other)
  Sender: FDA-Public Use
  Company Number: DE-ASTRAZENECA-2021A450029

PATIENT
  Sex: Female

DRUGS (2)
  1. ZOLEDRONAT [Concomitant]
     Active Substance: ZOLEDRONIC ACID
     Dates: start: 201909
  2. OSIMERTINIB. [Suspect]
     Active Substance: OSIMERTINIB
     Indication: NON-SMALL CELL LUNG CANCER
     Route: 048
     Dates: start: 20190830

REACTIONS (1)
  - Bone lesion [Unknown]
